FAERS Safety Report 18590442 (Version 1)
Quarter: 2020Q4

REPORT INFORMATION
  Report Type: Report from Study
  Country: CN (occurrence: CN)
  Receive Date: 20201208
  Receipt Date: 20201208
  Transmission Date: 20210114
  Serious: Yes (Other)
  Sender: FDA-Public Use
  Company Number: CN-GUERBET-CN-20200194

PATIENT
  Age: 2 Month
  Sex: Female

DRUGS (4)
  1. LIPIODOL [Suspect]
     Active Substance: ETHIODIZED OIL
     Indication: THERAPEUTIC EMBOLISATION
     Dosage: 2:1:1 VOLUME RATIO; FINAL CONCENTRATION OF LIPIODOL: 20%-33% (VOLUME/VOLUME)
     Route: 013
  2. POLYVINYL ALCOHOL PARTICLES [Concomitant]
     Indication: THERAPEUTIC EMBOLISATION
     Route: 013
  3. PINGYANGMYCIN [Concomitant]
     Active Substance: BLEOMYCIN A5
     Indication: THERAPEUTIC EMBOLISATION
     Dosage: MAXIMUM DOSE WAS 12 MG/M2, 2:1:1 VOLUME RATIO
     Route: 013
  4. DEXAMETHASONE. [Concomitant]
     Active Substance: DEXAMETHASONE
     Indication: THERAPEUTIC EMBOLISATION
     Dosage: 2:1:1 VOLUME RATIO
     Route: 013

REACTIONS (2)
  - Skin necrosis [Recovered/Resolved]
  - Product use in unapproved indication [Recovered/Resolved]
